FAERS Safety Report 5953938-8 (Version None)
Quarter: 2008Q4

REPORT INFORMATION
  Report Type: 
  Country: None (occurrence: None)
  Receive Date: 20081114
  Receipt Date: 20081107
  Transmission Date: 20090506
  Serious: Yes (Hospitalization)
  Sender: FDA-Public Use
  Company Number: US-GILEAD-2008-0018785

PATIENT
  Sex: Female
  Weight: 64.922 kg

DRUGS (5)
  1. TRUVADA [Suspect]
     Dates: start: 20070401
  2. PREZISTA [Suspect]
     Route: 048
     Dates: start: 20071130, end: 20081007
  3. NORVIR [Suspect]
     Route: 048
     Dates: start: 20071130, end: 20081007
  4. LISINOPRIL [Concomitant]
     Indication: HYPERTENSION
  5. VALTREX [Concomitant]
     Indication: GENITAL HERPES

REACTIONS (1)
  - MENINGITIS TUBERCULOUS [None]
